FAERS Safety Report 21237430 (Version 1)
Quarter: 2022Q3

REPORT INFORMATION
  Report Type: Spontaneous
  Country: US (occurrence: US)
  Receive Date: 20220822
  Receipt Date: 20220822
  Transmission Date: 20221027
  Serious: No
  Sender: FDA-Public Use
  Company Number: US-SA-SAC20220819001977

PATIENT
  Age: 73 Year
  Sex: Female

DRUGS (8)
  1. DUPIXENT [Suspect]
     Active Substance: DUPILUMAB
     Indication: Dermatitis atopic
     Dosage: INJECT 1 SYRINGE UNDER THE SKIN ONCE EVERY 14 DAYS
     Route: 058
     Dates: start: 20210308
  2. TRAZODONE [Concomitant]
     Active Substance: TRAZODONE HYDROCHLORIDE
  3. SUMATRIPTAN [Concomitant]
     Active Substance: SUMATRIPTAN
  4. FAMCICLOVIR [Concomitant]
     Active Substance: FAMCICLOVIR
  5. ESTRACE [Concomitant]
     Active Substance: ESTRADIOL
  6. VITAMIN D NOS [Concomitant]
     Active Substance: VITAMIN D NOS
  7. CLOBETASOL [Concomitant]
     Active Substance: CLOBETASOL
  8. LORATADINE [Concomitant]
     Active Substance: LORATADINE

REACTIONS (1)
  - Arthralgia [Unknown]

NARRATIVE: CASE EVENT DATE: 20220105
